FAERS Safety Report 9692296 (Version 1)
Quarter: 2013Q4

REPORT INFORMATION
  Report Type: Spontaneous
  Country: RS (occurrence: RS)
  Receive Date: 20131118
  Receipt Date: 20131118
  Transmission Date: 20140711
  Serious: Yes (Other)
  Sender: FDA-Public Use
  Company Number: RS-ACCORD-020289

PATIENT
  Age: 39 Year
  Sex: Female

DRUGS (6)
  1. POLYSORBATE 80 [Suspect]
  2. SODIUM CHLORIDE [Concomitant]
     Indication: PREMEDICATION
     Dosage: 0.9% OVER 10 MIN (PLACEBO)
  3. ETOPOSIDE [Suspect]
     Indication: CHORIOCARCINOMA
     Dosage: 200 MG IN 500 ML OF SODIUM CHLORIDE 0.9% OVER 60 MIN
  4. METHYLPREDNISOLONE [Concomitant]
     Indication: PREMEDICATION
     Route: 042
  5. DIPHENHYDRAMINE [Concomitant]
     Indication: PREMEDICATION
     Route: 042
  6. RANITIDINE [Concomitant]
     Indication: PREMEDICATION
     Route: 042

REACTIONS (12)
  - Type I hypersensitivity [Recovered/Resolved]
  - Throat tightness [Recovered/Resolved]
  - Palpitations [Recovered/Resolved]
  - Dyspnoea [Recovered/Resolved]
  - Hypotension [Recovered/Resolved]
  - Oxygen saturation decreased [Recovered/Resolved]
  - Tachycardia [Recovered/Resolved]
  - Bronchospasm [Recovered/Resolved]
  - Rash [Recovered/Resolved]
  - Feeling hot [Recovered/Resolved]
  - Chest discomfort [Recovered/Resolved]
  - Reaction to drug excipients [Recovered/Resolved]
